FAERS Safety Report 12598779 (Version 1)
Quarter: 2016Q3

REPORT INFORMATION
  Report Type: Spontaneous
  Country: US (occurrence: US)
  Receive Date: 20160726
  Receipt Date: 20160726
  Transmission Date: 20161109
  Serious: No
  Sender: FDA-Public Use
  Company Number: US-IMPAX LABORATORIES, INC-2015AMD00186

PATIENT

DRUGS (2)
  1. ADRENACLICK [Suspect]
     Active Substance: EPINEPHRINE
     Dosage: 0.30 MG, ONCE
     Route: 051
     Dates: start: 201508, end: 201508
  2. ADRENACLICK [Suspect]
     Active Substance: EPINEPHRINE
     Dosage: 0.30 MG, ONCE
     Route: 051
     Dates: start: 201508, end: 201508

REACTIONS (1)
  - Drug ineffective [Unknown]

NARRATIVE: CASE EVENT DATE: 201508
